FAERS Safety Report 6277180-9 (Version None)
Quarter: 2009Q3

REPORT INFORMATION
  Report Type: 
  Country: None (occurrence: None)
  Receive Date: 20090722
  Receipt Date: 20090204
  Transmission Date: 20100115
  Serious: No
  Sender: FDA-Public Use
  Company Number: US-BRISTOL-MYERS SQUIBB COMPANY-14493670

PATIENT
  Age: 71 Year
  Sex: Female
  Weight: 70 kg

DRUGS (5)
  1. COUMADIN [Suspect]
     Indication: PULMONARY THROMBOSIS
     Dosage: 1 DOSAGE FORM = 5 MG 4 TIMES WEEK ALTERNATING WITH 2.5 MG THREE TIMES A WEEK.
     Dates: start: 20081201
  2. LEXAPRO [Concomitant]
  3. BENAZEPRIL HYDROCHLORIDE [Concomitant]
  4. HYDROCHLOROTHIAZIDE [Concomitant]
  5. VITAMINS [Concomitant]

REACTIONS (1)
  - ALOPECIA [None]
